FAERS Safety Report 19020022 (Version 2)
Quarter: 2021Q1

REPORT INFORMATION
  Report Type: Spontaneous
  Country: AU (occurrence: AU)
  Receive Date: 20210317
  Receipt Date: 20210331
  Transmission Date: 20210420
  Serious: Yes (Other)
  Sender: FDA-Public Use
  Company Number: AU-PFIZER INC-2021289042

PATIENT
  Age: 71 Year
  Sex: Female

DRUGS (8)
  1. GALANTAMINE HYDROBROMIDE. [Suspect]
     Active Substance: GALANTAMINE HYDROBROMIDE
  2. CLOPIDOGREL [Suspect]
     Active Substance: CLOPIDOGREL BISULFATE
     Dosage: 75 MG
     Route: 065
  3. SOMAC [Suspect]
     Active Substance: PANTOPRAZOLE SODIUM
     Dosage: 20 MG, 2X/DAY
     Route: 065
  4. TRITACE [Suspect]
     Active Substance: RAMIPRIL
     Dosage: UNK
     Route: 065
  5. INDERAL [Suspect]
     Active Substance: PROPRANOLOL HYDROCHLORIDE
     Dosage: 40 MG, 2X/DAY
     Route: 065
  6. REMINYL [Suspect]
     Active Substance: GALANTAMINE
     Dosage: 20 MG, 2X/DAY
  7. MEMANTINE. [Suspect]
     Active Substance: MEMANTINE
     Dosage: UNK
     Route: 065
  8. EBIXA [Suspect]
     Active Substance: MEMANTINE HYDROCHLORIDE
     Dosage: UNK
     Route: 065

REACTIONS (11)
  - Confusional state [Unknown]
  - Agitation [Unknown]
  - Chest discomfort [Unknown]
  - Nightmare [Unknown]
  - Somnolence [Unknown]
  - Prescription drug used without a prescription [Unknown]
  - Ataxia [Unknown]
  - Asthenia [Unknown]
  - Hallucination [Unknown]
  - Hyperhidrosis [Unknown]
  - Vision blurred [Unknown]

NARRATIVE: CASE EVENT DATE: 20200410
